FAERS Safety Report 11659451 (Version 2)
Quarter: 2015Q4

REPORT INFORMATION
  Report Type: Spontaneous
  Country: US (occurrence: US)
  Receive Date: 20151026
  Receipt Date: 20151119
  Transmission Date: 20160304
  Serious: Yes (Hospitalization)
  Sender: FDA-Public Use
  Company Number: US-BIOGENIDEC-2015BI142978

PATIENT
  Age: 60 Year
  Sex: Female
  Weight: 62 kg

DRUGS (16)
  1. CYMBALTA [Concomitant]
     Active Substance: DULOXETINE HYDROCHLORIDE
     Indication: DEPRESSION
     Route: 048
     Dates: start: 200909, end: 201510
  2. DIOVAN HCT [Concomitant]
     Active Substance: HYDROCHLOROTHIAZIDE\VALSARTAN
     Indication: HYPERTENSION
     Route: 048
     Dates: start: 200909, end: 201510
  3. NORCO [Concomitant]
     Active Substance: ACETAMINOPHEN\HYDROCODONE BITARTRATE
     Indication: PAIN
     Dates: start: 201302, end: 201510
  4. PROAIR HFA [Concomitant]
     Active Substance: ALBUTEROL SULFATE
  5. TESSALON [Concomitant]
     Active Substance: BENZONATATE
  6. TYSABRI [Suspect]
     Active Substance: NATALIZUMAB
     Indication: PRODUCT USED FOR UNKNOWN INDICATION
     Route: 042
  7. IBUPROFEN. [Concomitant]
     Active Substance: IBUPROFEN
  8. AMPYRA [Concomitant]
     Active Substance: DALFAMPRIDINE
     Indication: MULTIPLE SCLEROSIS
     Route: 048
     Dates: start: 201204, end: 201508
  9. DETROL LA [Concomitant]
     Active Substance: TOLTERODINE TARTRATE
     Indication: NEUROGENIC BLADDER
     Route: 048
     Dates: start: 200909, end: 201509
  10. DULOXETINE. [Concomitant]
     Active Substance: DULOXETINE
     Route: 048
  11. AMPYRA [Concomitant]
     Active Substance: DALFAMPRIDINE
     Indication: ATAXIA
     Route: 048
     Dates: start: 201204, end: 201508
  12. MEDICAL MARIJUANA [Concomitant]
     Active Substance: CANNABIS SATIVA SUBSP. INDICA TOP
  13. TOLTERODINE TARTRATE. [Concomitant]
     Active Substance: TOLTERODINE TARTRATE
  14. BACLOFEN. [Concomitant]
     Active Substance: BACLOFEN
     Indication: MUSCLE SPASTICITY
     Route: 048
     Dates: start: 200909, end: 201510
  15. DIOVAN HCT [Concomitant]
     Active Substance: HYDROCHLOROTHIAZIDE\VALSARTAN
     Indication: HYPERTENSION
     Route: 048
     Dates: start: 200909, end: 201510
  16. NORCO [Concomitant]
     Active Substance: ACETAMINOPHEN\HYDROCODONE BITARTRATE
     Indication: PAIN
     Dates: start: 201302, end: 201510

REACTIONS (11)
  - Weight decreased [Recovered/Resolved]
  - Hypokalaemia [Unknown]
  - Urinary tract infection [Unknown]
  - Anxiety [Unknown]
  - Metabolic acidosis [Unknown]
  - Dysuria [Unknown]
  - Hypernatraemia [Unknown]
  - Hypochloraemia [Unknown]
  - Hypertension [Unknown]
  - Suprapubic pain [Unknown]
  - Night sweats [Unknown]

NARRATIVE: CASE EVENT DATE: 201207
